FAERS Safety Report 16708291 (Version 26)
Quarter: 2021Q2

REPORT INFORMATION
  Report Type: Report from Study
  Country: CO (occurrence: CO)
  Receive Date: 20190816
  Receipt Date: 20210419
  Transmission Date: 20210716
  Serious: Yes (Other)
  Sender: FDA-Public Use
  Company Number: CO-BRISTOL-MYERS SQUIBB COMPANY-BMS-2019-053840

PATIENT
  Age: 30 Year
  Sex: Female
  Weight: 32 kg

DRUGS (1)
  1. ABATACEPT [Suspect]
     Active Substance: ABATACEPT
     Indication: RHEUMATOID ARTHRITIS
     Dosage: 125 MILLIGRAM, QWK
     Route: 058
     Dates: start: 20180816, end: 20200707

REACTIONS (25)
  - Odynophagia [Recovering/Resolving]
  - Weight decreased [Recovering/Resolving]
  - Throat irritation [Unknown]
  - Acne [Recovering/Resolving]
  - Diarrhoea [Recovering/Resolving]
  - Malaise [Recovering/Resolving]
  - Oral discomfort [Not Recovered/Not Resolved]
  - Neutropenia [Recovering/Resolving]
  - Oedema peripheral [Recovering/Resolving]
  - Pyrexia [Recovering/Resolving]
  - Oropharyngeal pain [Recovering/Resolving]
  - General physical health deterioration [Unknown]
  - Mouth haemorrhage [Not Recovered/Not Resolved]
  - Furuncle [Recovering/Resolving]
  - Limb injury [Unknown]
  - Pain in extremity [Recovering/Resolving]
  - Oral disorder [Recovering/Resolving]
  - Abscess limb [Recovering/Resolving]
  - Arthritis [Recovering/Resolving]
  - Pain [Recovering/Resolving]
  - Abdominal pain [Recovering/Resolving]
  - Cough [Recovering/Resolving]
  - Muscle spasms [Recovering/Resolving]
  - Oral mucosal blistering [Recovering/Resolving]
  - Blister [Recovering/Resolving]

NARRATIVE: CASE EVENT DATE: 20190522
